FAERS Safety Report 20596446 (Version 5)
Quarter: 2022Q2

REPORT INFORMATION
  Report Type: Spontaneous
  Country: US (occurrence: US)
  Receive Date: 20220315
  Receipt Date: 20220525
  Transmission Date: 20220720
  Serious: Yes (Hospitalization, Other)
  Sender: FDA-Public Use
  Company Number: US-PFIZER INC-202200355137

PATIENT
  Age: 53 Year
  Sex: Female

DRUGS (2)
  1. IBRANCE [Suspect]
     Active Substance: PALBOCICLIB
     Dosage: 100 MG, UNK
     Dates: start: 20220117
  2. IBRANCE [Suspect]
     Active Substance: PALBOCICLIB
     Dosage: UNK
     Dates: start: 20220223

REACTIONS (16)
  - Loss of consciousness [Recovering/Resolving]
  - Wrist fracture [Recovering/Resolving]
  - Circulatory collapse [Unknown]
  - Concussion [Recovering/Resolving]
  - Fall [Unknown]
  - Hypotension [Unknown]
  - Neuropathy peripheral [Unknown]
  - Limb operation [Unknown]
  - Product dose omission issue [Unknown]
  - Oral pain [Unknown]
  - Mouth ulceration [Unknown]
  - Paraesthesia [Unknown]
  - Oral herpes [Recovered/Resolved]
  - Stomatitis [Unknown]
  - Dizziness [Unknown]
  - Headache [Unknown]

NARRATIVE: CASE EVENT DATE: 20220301
